FAERS Safety Report 24562152 (Version 1)
Quarter: 2024Q4

REPORT INFORMATION
  Report Type: Spontaneous
  Country: NL (occurrence: NL)
  Receive Date: 20241029
  Receipt Date: 20241029
  Transmission Date: 20250115
  Serious: Yes (Hospitalization)
  Sender: TEVA
  Company Number: None

PATIENT
  Age: 73 Year
  Sex: Female
  Weight: 71 kg

DRUGS (10)
  1. GABAPENTIN [Suspect]
     Active Substance: GABAPENTIN
     Indication: Pruritus
     Dosage: 1 X 1 PIECE PER DAY, / BRAND NAME NOT SPECIFIED
     Route: 065
     Dates: start: 20240802, end: 20241003
  2. APIXABAN [Concomitant]
     Active Substance: APIXABAN
     Indication: Product used for unknown indication
     Dosage: / BRAND NAME NOT SPECIFIED
     Route: 065
  3. COSMETICS [Concomitant]
     Active Substance: COSMETICS
     Indication: Product used for unknown indication
     Dosage: BASIS FOR CETOMACROGOL / BRAND NAME NOT SPECIFIED
     Route: 065
  4. PANTOPRAZOLE [Concomitant]
     Active Substance: PANTOPRAZOLE
     Indication: Product used for unknown indication
     Dosage: MSR / BRAND NAME NOT SPECIFIED
     Route: 065
  5. DESOXIMETASONE [Concomitant]
     Active Substance: DESOXIMETASONE
     Indication: Product used for unknown indication
     Dosage: LINIMENT (EMULSION), 2.5 MG/G (MILLIGRAM PER GRAM), / BRAND NAME NOT SPECIFIED
     Route: 065
  6. LEVOCETIRIZINE [Concomitant]
     Active Substance: LEVOCETIRIZINE
     Indication: Product used for unknown indication
     Dosage: FO / BRAND NAME NOT SPECIFIED
     Route: 065
  7. SIMVASTATIN [Concomitant]
     Active Substance: SIMVASTATIN
     Indication: Product used for unknown indication
     Dosage: FO / BRAND NAME NOT SPECIFIED
     Route: 065
  8. AZELASTINE HYDROCHLORIDE\FLUTICASONE PROPIONATE [Concomitant]
     Active Substance: AZELASTINE HYDROCHLORIDE\FLUTICASONE PROPIONATE
     Indication: Product used for unknown indication
     Dosage: 137/50 ?G/DOSE (MICROGRAM PER DOSE 137/50UG/DO / BRAND NAME NOT SPECIFIED
     Route: 045
  9. BECLOMETHASONE\FORMOTEROL [Concomitant]
     Active Substance: BECLOMETHASONE\FORMOTEROL
     Indication: Product used for unknown indication
     Dosage: AEROSOL, 200/6 ?G/DOSE (MICROGRAMS PER DOSE),AEROSOL 200/6UG/DO / BRAND NAME NOT SPECIFIED
     Route: 065
  10. LEVOTHYROXINE [Concomitant]
     Active Substance: LEVOTHYROXINE
     Indication: Product used for unknown indication
     Dosage: / BRAND NAME NOT SPECIFIED
     Route: 065

REACTIONS (1)
  - Purpura [Recovering/Resolving]
